FAERS Safety Report 6931008-X (Version None)
Quarter: 2010Q3

REPORT INFORMATION
  Report Type: 
  Country: None (occurrence: None)
  Receive Date: 20100818
  Receipt Date: 20100809
  Transmission Date: 20110219
  Serious: Yes (Hospitalization)
  Sender: FDA-Public Use
  Company Number: US-ASTRAZENECA-2010SE37097

PATIENT
  Age: 80 Year
  Sex: Male
  Weight: 90.3 kg

DRUGS (18)
  1. SYMBICORT [Suspect]
     Dosage: 160/4.5, 2 PUFFS
     Route: 055
  2. PROAIR HFA [Concomitant]
  3. WARFARIN [Concomitant]
  4. DIGOXIN [Concomitant]
  5. UROXATRAL [Concomitant]
  6. SPIRIVA [Concomitant]
  7. SIMVASTATIN [Concomitant]
  8. CALCITRIOL [Concomitant]
  9. AVODART [Concomitant]
  10. DILTIAZEM HCL [Concomitant]
  11. FERROUS SULFATE [Concomitant]
  12. BLEPHAMIDE OPTHO [Concomitant]
  13. AZELASTINE HCL [Concomitant]
  14. O2 [Concomitant]
  15. PREDNISONE [Concomitant]
  16. ALBUTEROL [Concomitant]
  17. IPRATROPIUM BROMIDE [Concomitant]
  18. CEFDINIR [Concomitant]

REACTIONS (1)
  - PNEUMONIA [None]
